FAERS Safety Report 7562293-1 (Version None)
Quarter: 2011Q2

REPORT INFORMATION
  Report Type: 
  Country: None (occurrence: None)
  Receive Date: 20110622
  Receipt Date: 20110610
  Transmission Date: 20111010
  Serious: Yes (Other)
  Sender: FDA-Public Use
  Company Number: FR-ELI_LILLY_AND_COMPANY-FR201106002983

PATIENT
  Sex: Male

DRUGS (2)
  1. CIALIS [Suspect]
     Route: 048
  2. XANAX [Concomitant]
     Route: 048

REACTIONS (1)
  - RETINAL DETACHMENT [None]
